FAERS Safety Report 9620675 (Version 1)
Quarter: 2013Q4

REPORT INFORMATION
  Report Type: Spontaneous
  Country: HU (occurrence: HU)
  Receive Date: 20131015
  Receipt Date: 20131015
  Transmission Date: 20140711
  Serious: Yes (Death, Other)
  Sender: FDA-Public Use
  Company Number: HU-AMGEN-HUNSP2013070832

PATIENT
  Age: 67 Year
  Sex: Female

DRUGS (8)
  1. XGEVA [Suspect]
     Indication: METASTASES TO BONE
     Dosage: UNK
     Route: 065
     Dates: start: 20130731
  2. FRAGMINE [Concomitant]
  3. NOACID                             /00057401/ [Concomitant]
  4. ANABREST [Concomitant]
  5. MILURIT [Concomitant]
  6. NOOTROPIL [Concomitant]
  7. CORVATON [Concomitant]
     Indication: CARDIAC DISORDER
  8. LOKREN [Concomitant]
     Indication: CARDIAC DISORDER

REACTIONS (7)
  - Cardiac arrest [Fatal]
  - Upper limb fracture [Unknown]
  - Nervous system disorder [Unknown]
  - Daydreaming [Unknown]
  - Fall [Unknown]
  - Dizziness [Unknown]
  - Asthenia [Unknown]
